FAERS Safety Report 5350379-1 (Version None)
Quarter: 2007Q2

REPORT INFORMATION
  Report Type: 
  Country: None (occurrence: None)
  Receive Date: 20070608
  Receipt Date: 20070605
  Transmission Date: 20071010
  Serious: Yes (Hospitalization)
  Sender: FDA-Public Use
  Company Number: JP-SP-2007-00500

PATIENT
  Age: 64 Year
  Sex: Female

DRUGS (2)
  1. IMMUCYST [Suspect]
     Indication: CARCINOMA IN SITU OF BLADDER
     Route: 043
     Dates: start: 20060712, end: 20060920
  2. DICLOFENAC SODIUM [Concomitant]
     Dates: start: 20060712, end: 20060906

REACTIONS (1)
  - CYSTITIS [None]
